FAERS Safety Report 14234668 (Version 4)
Quarter: 2020Q3

REPORT INFORMATION
  Report Type: Report from Study
  Country: AU (occurrence: AU)
  Receive Date: 20171129
  Receipt Date: 20180123
  Transmission Date: 20201104
  Serious: Yes (Hospitalization)
  Sender: FDA-Public Use
  Company Number: AU-ROCHE-2028040

PATIENT
  Age: 59 Year
  Sex: Male
  Weight: 80.6 kg

DRUGS (13)
  1. OBINUTUZUMAB. [Suspect]
     Active Substance: OBINUTUZUMAB
     Indication: B-CELL LYMPHOMA
     Dosage: ON DAYS 1, 8 AND 15 OF CYCLE 1 AND ON DAY 1 OF CYCLES 2 TO 6 (EACH CYCLE= 21 DAYS)?DATE OF MOST RECE
     Route: 042
     Dates: start: 20161221
  2. POLATUZUMAB VEDOTIN. [Suspect]
     Active Substance: POLATUZUMAB VEDOTIN
     Indication: B-CELL LYMPHOMA
     Dosage: 1.4/1.8 MG/KG?DATE OF MOST RECENT DOSE OF POLATUZUMAB VEDOTIN PRIOR TO AE ONSET: 07/APR/2017 (113 MG
     Route: 042
     Dates: start: 20161221
  3. PARACETAMOL [Concomitant]
     Active Substance: ACETAMINOPHEN
     Indication: HEADACHE
     Route: 065
     Dates: start: 2016
  4. VENTOLIN [Concomitant]
     Active Substance: ALBUTEROL SULFATE
     Indication: CHRONIC OBSTRUCTIVE PULMONARY DISEASE
  5. ENOXAPARIN [Concomitant]
     Active Substance: ENOXAPARIN
     Indication: THROMBOSIS PROPHYLAXIS
     Route: 065
     Dates: start: 20171117, end: 20171122
  6. VENETOCLAX. [Suspect]
     Active Substance: VENETOCLAX
     Indication: B-CELL LYMPHOMA
     Dosage: DATE OF MOST RECENT DOSE OF VENETOCLAX PRIOR TO AE ONSET: 16/NOV/2017 (200 MG)
     Route: 048
     Dates: start: 20161221
  7. INTRAGAM P [Concomitant]
     Active Substance: HUMAN IMMUNOGLOBULIN G
     Indication: HYPOGAMMAGLOBULINAEMIA
     Route: 065
     Dates: start: 20170106
  8. PANTOPRAZOLE [Concomitant]
     Active Substance: PANTOPRAZOLE
     Indication: ABDOMINAL DISTENSION
     Route: 065
     Dates: start: 20170411, end: 20171016
  9. BACTRIM DS [Concomitant]
     Active Substance: SULFAMETHOXAZOLE\TRIMETHOPRIM
     Indication: SINUSITIS
     Route: 065
     Dates: start: 20170203, end: 20171016
  10. BRIMICA GENUAIR [Concomitant]
     Active Substance: ACLIDINIUM BROMIDE\FORMOTEROL FUMARATE
     Indication: INFLUENZA LIKE ILLNESS
     Dosage: 240/112
     Route: 065
     Dates: start: 20170921, end: 20171016
  11. VENTOLIN [Concomitant]
     Active Substance: ALBUTEROL SULFATE
     Indication: ASTHMA
  12. NICOTINE. [Concomitant]
     Active Substance: NICOTINE
     Route: 065
     Dates: start: 20171119
  13. PREGABALIN. [Concomitant]
     Active Substance: PREGABALIN
     Indication: INJECTION SITE EXTRAVASATION
     Route: 065
     Dates: start: 20170531, end: 20171016

REACTIONS (2)
  - Infective exacerbation of chronic obstructive airways disease [Recovered/Resolved]
  - Infective exacerbation of chronic obstructive airways disease [Recovered/Resolved]

NARRATIVE: CASE EVENT DATE: 20171109
